FAERS Safety Report 7480849-1 (Version None)
Quarter: 2011Q2

REPORT INFORMATION
  Report Type: 
  Country: None (occurrence: None)
  Receive Date: 20110506
  Receipt Date: 20110422
  Transmission Date: 20111010
  Serious: Yes (Hospitalization)
  Sender: FDA-Public Use
  Company Number: 2011MA004748

PATIENT
  Age: 58 Year
  Sex: Male

DRUGS (4)
  1. LEXOTAN [Concomitant]
  2. LIORESAL [Concomitant]
  3. LYRICA [Concomitant]
  4. IRINOTECAN HYDROCHLORIDE [Suspect]
     Indication: COLON CANCER
     Dosage: 170 MG;QD;IV
     Route: 042
     Dates: start: 20110316, end: 20110316

REACTIONS (3)
  - DRY MOUTH [None]
  - CHOLINERGIC SYNDROME [None]
  - HYPOTENSION [None]
